FAERS Safety Report 9306568 (Version 1)
Quarter: 2013Q2

REPORT INFORMATION
  Report Type: Spontaneous
  Country: FR (occurrence: FR)
  Receive Date: 20130523
  Receipt Date: 20130523
  Transmission Date: 20140414
  Serious: Yes (Death, Hospitalization)
  Sender: FDA-Public Use
  Company Number: FR-B.I. PHARMACEUTICALS,INC./RIDGEFIELD-2013-FF-01442FF

PATIENT
  Age: 72 Year
  Sex: Male

DRUGS (1)
  1. PRADAXA [Suspect]
     Route: 048

REACTIONS (4)
  - Acute abdomen [Fatal]
  - Intestinal perforation [Fatal]
  - Fall [Unknown]
  - Malaise [Unknown]
